FAERS Safety Report 5298952-3 (Version None)
Quarter: 2007Q2

REPORT INFORMATION
  Report Type: 
  Country: None (occurrence: None)
  Receive Date: 20070417
  Receipt Date: 20070406
  Transmission Date: 20071010
  Serious: Yes (Hospitalization)
  Sender: FDA-Public Use
  Company Number: US-AMGEN-US218429

PATIENT
  Sex: Male
  Weight: 113.5 kg

DRUGS (11)
  1. ARANESP [Suspect]
     Indication: DIALYSIS
     Route: 065
  2. PROCRIT [Suspect]
     Indication: DIALYSIS
     Route: 065
     Dates: start: 20070318
  3. INDERAL [Concomitant]
  4. LANTUS [Concomitant]
     Indication: DIABETES MELLITUS
  5. LASIX [Concomitant]
  6. IMDUR [Concomitant]
  7. COUMADIN [Concomitant]
  8. ALLOPURINOL [Concomitant]
  9. DITROPAN [Concomitant]
  10. PROTONIX [Concomitant]
  11. REMERON [Concomitant]

REACTIONS (3)
  - HOSPITALISATION [None]
  - TREMOR [None]
  - WOUND SEPSIS [None]
